FAERS Safety Report 5489352-1 (Version None)
Quarter: 2007Q4

REPORT INFORMATION
  Report Type: 
  Country: None (occurrence: None)
  Receive Date: 20071018
  Receipt Date: 20071010
  Transmission Date: 20080405
  Serious: Yes (Death, Other)
  Sender: FDA-Public Use
  Company Number: US-BRISTOL-MYERS SQUIBB COMPANY-13861315

PATIENT
  Age: 5 Year
  Sex: Male

DRUGS (7)
  1. CYCLOPHOSPHAMIDE [Suspect]
     Indication: RETINOBLASTOMA
  2. CARBOPLATIN [Suspect]
     Indication: RETINOBLASTOMA
     Route: 042
  3. ETOPOSIDE [Suspect]
     Indication: RETINOBLASTOMA
  4. ETOPOSIDE [Suspect]
     Route: 048
  5. VINCRISTINE SULFATE [Suspect]
     Indication: RETINOBLASTOMA
  6. IDARUBICIN HCL [Suspect]
     Indication: RETINOBLASTOMA
  7. RADIATION THERAPY [Concomitant]
     Indication: RETINOBLASTOMA

REACTIONS (1)
  - MYELOID LEUKAEMIA [None]
